FAERS Safety Report 8952470 (Version 2)
Quarter: 2013Q1

REPORT INFORMATION
  Report Type: Spontaneous
  Country: US (occurrence: US)
  Receive Date: 20121205
  Receipt Date: 20130129
  Transmission Date: 20140127
  Serious: Yes (Other)
  Sender: FDA-Public Use
  Company Number: US-BAYER-2012-126911

PATIENT
  Age: 36 Year
  Sex: Female
  Weight: 158.73 kg

DRUGS (5)
  1. YAZ [Suspect]
     Dosage: UNK
     Dates: start: 20060201, end: 200704
  2. YAZ [Suspect]
     Dosage: UNK
     Dates: start: 2004
  3. TOPAMAX [Concomitant]
     Indication: MIGRAINE
     Dosage: UNK
     Dates: start: 200805
  4. ELAVIL [Concomitant]
     Indication: MIGRAINE
     Dosage: UNK
     Dates: start: 200805
  5. IBUPROFEN [Concomitant]
     Dosage: UNK
     Dates: start: 2010, end: 2012

REACTIONS (8)
  - Cholelithiasis [None]
  - Pain [None]
  - Injury [None]
  - General physical health deterioration [None]
  - Anxiety [None]
  - Anhedonia [None]
  - Emotional distress [None]
  - Pain [None]
